FAERS Safety Report 9219715 (Version 1)
Quarter: 2013Q2

REPORT INFORMATION
  Report Type: Report from Study
  Country: CA (occurrence: CA)
  Receive Date: 20130409
  Receipt Date: 20130409
  Transmission Date: 20140414
  Serious: Yes (Other)
  Sender: FDA-Public Use
  Company Number: CA-JNJFOC-20130400976

PATIENT
  Sex: Female

DRUGS (2)
  1. REMICADE [Suspect]
     Indication: CROHN^S DISEASE
     Route: 042
     Dates: start: 2008
  2. HUMIRA [Concomitant]
     Indication: CROHN^S DISEASE
     Route: 065

REACTIONS (2)
  - VIIth nerve paralysis [Unknown]
  - Angiopathy [Unknown]
